FAERS Safety Report 25112352 (Version 1)
Quarter: 2025Q1

REPORT INFORMATION
  Report Type: Spontaneous
  Country: US (occurrence: US)
  Receive Date: 20250324
  Receipt Date: 20250324
  Transmission Date: 20250409
  Serious: No
  Sender: UCB
  Company Number: US-UCBSA-2024026954

PATIENT
  Sex: Male

DRUGS (3)
  1. BRIVIACT [Suspect]
     Active Substance: BRIVARACETAM
     Indication: Status epilepticus
     Dosage: 25 MILLIGRAM, 2X/DAY (BID)
     Dates: start: 2019
  2. BRIVIACT [Suspect]
     Active Substance: BRIVARACETAM
     Dosage: 200 MILLIGRAM, 2X/DAY (BID)
  3. KEPPRA [Concomitant]
     Active Substance: LEVETIRACETAM
     Indication: Status epilepticus

REACTIONS (2)
  - Product use in unapproved indication [Unknown]
  - Inability to afford medication [Unknown]
